FAERS Safety Report 8080071-4 (Version None)
Quarter: 2012Q1

REPORT INFORMATION
  Report Type: 
  Country: None (occurrence: None)
  Receive Date: 20120128
  Receipt Date: 20110824
  Transmission Date: 20120608
  Serious: No
  Sender: FDA-Public Use
  Company Number: US-ABBOTT-11P-163-0849008-00

PATIENT
  Sex: Male
  Weight: 80.812 kg

DRUGS (4)
  1. ASACOL [Concomitant]
     Indication: CROHN'S DISEASE
  2. PREDNISONE TAB [Concomitant]
     Indication: CROHN'S DISEASE
  3. HUMIRA [Suspect]
     Indication: CROHN'S DISEASE
     Dosage: ONE DOSE
     Dates: start: 20101201, end: 20101201
  4. HUMIRA [Suspect]
     Dates: end: 20110101

REACTIONS (2)
  - INJECTION SITE PAIN [None]
  - DRUG INEFFECTIVE [None]
